FAERS Safety Report 8136077-X (Version None)
Quarter: 2012Q1

REPORT INFORMATION
  Report Type: 
  Country: None (occurrence: None)
  Receive Date: 20120214
  Receipt Date: 20120207
  Transmission Date: 20120608
  Serious: Yes (Hospitalization)
  Sender: FDA-Public Use
  Company Number: JP-JNJFOC-20120100088

PATIENT
  Sex: Female
  Weight: 47 kg

DRUGS (20)
  1. TRAMADOL HYDROCHLORIDE AND ACETAMINOPHEN [Suspect]
     Indication: PAIN
     Dosage: ONCE A DAY
     Route: 048
     Dates: start: 20120111, end: 20120117
  2. FAMOTIDINE [Concomitant]
     Indication: GASTRITIS
     Dosage: TWICE A DAY
     Route: 048
     Dates: end: 20120104
  3. MAGMITT [Concomitant]
     Dosage: TWICE A DAY
     Route: 048
     Dates: start: 20111230
  4. UNKNOWN MEDICATION [Concomitant]
     Dosage: ONCE A DAY
     Route: 042
     Dates: start: 20111231, end: 20120104
  5. FENTANYL [Suspect]
     Dosage: ONCE A DAY
     Route: 062
     Dates: start: 20111214, end: 20111221
  6. TRAMADOL HYDROCHLORIDE AND ACETAMINOPHEN [Suspect]
     Dosage: 4 TIMES A DAY
     Route: 048
     Dates: start: 20111231, end: 20120105
  7. MAGMITT [Concomitant]
     Dosage: TWICE A DAY
     Route: 048
     Dates: end: 20111220
  8. ZOLPIDEM [Concomitant]
     Dosage: ONCE A DAY
     Route: 048
     Dates: start: 20111228
  9. TRAMADOL HYDROCHLORIDE AND ACETAMINOPHEN [Suspect]
     Dosage: 4 TIMES A DAY
     Route: 048
     Dates: end: 20111129
  10. LOXONIN [Concomitant]
     Indication: PAIN
     Dosage: ONCE A DAY
     Route: 062
  11. NOVAMIN [Concomitant]
     Dosage: THRICE A DAY
     Route: 048
     Dates: start: 20111219, end: 20111220
  12. DEPAS [Concomitant]
     Dosage: AS PER NECESSARY
     Route: 048
     Dates: start: 20111231
  13. NOVAMIN [Concomitant]
     Dosage: AS PER NECESSARY
     Route: 048
     Dates: start: 20111227, end: 20111229
  14. FAMOTIDINE [Concomitant]
     Indication: GASTRITIS
     Dosage: TWICE A DAY
     Route: 048
     Dates: start: 20120105
  15. FENTANYL [Suspect]
     Dosage: ONCE A DAY
     Route: 062
     Dates: start: 20111222, end: 20111230
  16. TRAMADOL HYDROCHLORIDE AND ACETAMINOPHEN [Suspect]
     Dosage: TWICE A DAY
     Route: 048
     Dates: start: 20111130, end: 20111130
  17. NOVAMIN [Concomitant]
     Dosage: 4 TIMES A DAY
     Route: 048
     Dates: start: 20111221, end: 20111226
  18. FENTANYL [Suspect]
     Indication: PAIN
     Dosage: ONCE A DAY
     Route: 062
     Dates: start: 20111130, end: 20111213
  19. TRAMADOL HYDROCHLORIDE AND ACETAMINOPHEN [Suspect]
     Dosage: ONCE A DAY
     Route: 048
     Dates: start: 20120118
  20. MAGMITT [Concomitant]
     Indication: CONSTIPATION
     Dosage: THRICE A DAY
     Route: 048
     Dates: start: 20111221, end: 20111229

REACTIONS (1)
  - ADJUSTMENT DISORDER [None]
